FAERS Safety Report 14998981 (Version 1)
Quarter: 2018Q2

REPORT INFORMATION
  Report Type: Report from Study
  Country: AR (occurrence: AR)
  Receive Date: 20180612
  Receipt Date: 20180612
  Transmission Date: 20180711
  Serious: Yes (Other)
  Sender: FDA-Public Use
  Company Number: AR-TEVA-2018-AR-898560

PATIENT

DRUGS (2)
  1. COPAXONE [Suspect]
     Active Substance: GLATIRAMER ACETATE
     Route: 058
  2. COPAXONE [Suspect]
     Active Substance: GLATIRAMER ACETATE
     Dosage: 20 MILLIGRAM/MILLILITERS DAILY;
     Route: 058
     Dates: start: 200507

REACTIONS (7)
  - Injection site induration [Unknown]
  - Injection site warmth [Unknown]
  - Erythema [Unknown]
  - Pruritus [Unknown]
  - Injection site necrosis [Unknown]
  - Swelling [Unknown]
  - Contusion [Unknown]
